FAERS Safety Report 8809042 (Version 1)
Quarter: 2012Q4

REPORT INFORMATION
  Report Type: Spontaneous
  Country: US (occurrence: None)
  Receive Date: 20120921
  Receipt Date: 20120921
  Transmission Date: 20130627
  Serious: Yes (Hospitalization)
  Sender: FDA-Public Use
  Company Number: None

PATIENT
  Age: 73 Year
  Sex: Male
  Weight: 118.2 kg

DRUGS (2)
  1. LEVAQUIN [Suspect]
     Indication: DIVERTICULITIS
     Dosage: 500 mg, 1 a day, 10 days
     Dates: start: 20120220, end: 20120310
  2. METRONIDAZOLE [Suspect]
     Dosage: 3 a day, 10 days

REACTIONS (14)
  - Pain in extremity [None]
  - Muscle spasms [None]
  - Dizziness [None]
  - Diarrhoea [None]
  - Hyperhidrosis [None]
  - Pain in extremity [None]
  - Dehydration [None]
  - Back pain [None]
  - Blood glucose increased [None]
  - Gait disturbance [None]
  - Pain in extremity [None]
  - Oedema peripheral [None]
  - Balance disorder [None]
  - Tendon rupture [None]
